FAERS Safety Report 5007105-5 (Version None)
Quarter: 2006Q1

REPORT INFORMATION
  Report Type: 
  Country: None (occurrence: None)
  Receive Date: 20060320
  Receipt Date: 20050617
  Transmission Date: 20060701
  Serious: Yes (Other)
  Sender: FDA-Public Use
  Company Number: 2005-06-1283

PATIENT
  Age: 49 Year
  Sex: Female
  Weight: 73.0291 kg

DRUGS (8)
  1. PEG-INTRON [Suspect]
     Indication: HEPATITIS C
     Dosage: 96 MCG QW SUBCUTANEOUS
     Route: 058
     Dates: start: 20050511, end: 20050602
  2. REBETOL [Suspect]
     Indication: HEPATITIS C
     Dosage: 800 MG QD ORAL
     Route: 048
     Dates: start: 20050511, end: 20050606
  3. PHENERGAN HCL [Suspect]
     Indication: NAUSEA
     Dates: start: 20050523
  4. PHENERGAN HCL [Suspect]
     Indication: VOMITING
     Dates: start: 20050523
  5. RESTORIL [Concomitant]
  6. MULTIVITAMIN [Concomitant]
  7. TYLENOL (CAPLET) [Concomitant]
  8. VITAMIN E [Concomitant]

REACTIONS (22)
  - ABDOMINAL PAIN [None]
  - ANOREXIA [None]
  - APHASIA [None]
  - ASTHENIA [None]
  - BACK INJURY [None]
  - CHEST DISCOMFORT [None]
  - CONSTIPATION [None]
  - CONVULSION [None]
  - DEPRESSION [None]
  - DIARRHOEA [None]
  - FEELING ABNORMAL [None]
  - HEADACHE [None]
  - HEPATOMEGALY [None]
  - HYPERHIDROSIS [None]
  - INFLUENZA LIKE ILLNESS [None]
  - MALAISE [None]
  - MUSCULOSKELETAL STIFFNESS [None]
  - MYALGIA [None]
  - NAUSEA [None]
  - PAIN [None]
  - PYREXIA [None]
  - VOMITING [None]
